FAERS Safety Report 5242775-8 (Version None)
Quarter: 2007Q1

REPORT INFORMATION
  Report Type: 
  Country: None (occurrence: None)
  Receive Date: 20070214
  Receipt Date: 20070201
  Transmission Date: 20070707
  Serious: Yes (Death, Life-Threatening)
  Sender: FDA-Public Use
  Company Number: 2007-00153

PATIENT
  Age: 61 Year
  Sex: Male
  Weight: 100 kg

DRUGS (1)
  1. VELCADE [Suspect]
     Indication: MULTIPLE MYELOMA
     Dosage: 2.50 MG
     Dates: start: 20061201, end: 20061209

REACTIONS (5)
  - BONE MARROW FAILURE [None]
  - GENERAL PHYSICAL HEALTH DETERIORATION [None]
  - MALIGNANT NEOPLASM PROGRESSION [None]
  - MULTIPLE MYELOMA [None]
  - PANCYTOPENIA [None]
